FAERS Safety Report 21567183 (Version 1)
Quarter: 2022Q4

REPORT INFORMATION
  Report Type: Spontaneous
  Country: JP (occurrence: JP)
  Receive Date: 20221108
  Receipt Date: 20221108
  Transmission Date: 20230113
  Serious: Yes (Hospitalization, Other)
  Sender: FDA-Public Use
  Company Number: JP-DSJP-DSJ-2022-140119

PATIENT
  Age: 83 Year
  Sex: Male
  Weight: 70 kg

DRUGS (2)
  1. EDOXABAN TOSYLATE [Suspect]
     Active Substance: EDOXABAN TOSYLATE
     Indication: Product used for unknown indication
     Dosage: 60 MG, QD
     Route: 065
  2. UNSPECIFIED INGREDIENT [Suspect]
     Active Substance: UNSPECIFIED INGREDIENT
     Indication: Spinal compression fracture
     Dosage: UNK
     Route: 065

REACTIONS (2)
  - Renal impairment [Unknown]
  - Shock haemorrhagic [Unknown]
